FAERS Safety Report 9182425 (Version 1)
Quarter: 2013Q1

REPORT INFORMATION
  Report Type: Spontaneous
  Country: US (occurrence: US)
  Receive Date: 20130322
  Receipt Date: 20130322
  Transmission Date: 20140127
  Serious: Yes (Hospitalization, Other)
  Sender: FDA-Public Use
  Company Number: US-BRISTOL-MYERS SQUIBB COMPANY-16744294

PATIENT
  Age: 80 Year
  Sex: Male

DRUGS (1)
  1. ERBITUX [Suspect]
     Indication: HEAD AND NECK CANCER

REACTIONS (6)
  - Diarrhoea [Unknown]
  - Dehydration [Unknown]
  - Rash [Unknown]
  - Paronychia [Unknown]
  - Nail disorder [Unknown]
  - Onychoclasis [Unknown]
